FAERS Safety Report 8435773 (Version 12)
Quarter: 2013Q3

REPORT INFORMATION
  Report Type: Report from Study
  Country: DE (occurrence: DE)
  Receive Date: 20120301
  Receipt Date: 20130726
  Transmission Date: 20140515
  Serious: Yes (Hospitalization, Other)
  Sender: FDA-Public Use
  Company Number: PHHY2012DE015495

PATIENT
  Age: 74 Year
  Sex: Male
  Weight: 88 kg

DRUGS (13)
  1. TASIGNA [Suspect]
     Indication: CHRONIC MYELOID LEUKAEMIA
     Dosage: 600 MG, PER DAY
     Route: 048
     Dates: start: 20111202, end: 20111227
  2. TASIGNA [Suspect]
     Dosage: 450 MG, PER DAY
     Route: 048
     Dates: start: 20111228, end: 20120320
  3. TASIGNA [Suspect]
     Dosage: 300 MG, PER DAY
     Route: 048
     Dates: start: 20130204
  4. ASS [Concomitant]
     Indication: ANTIPLATELET THERAPY
     Dosage: 100 MG, DAILY
  5. OMEPRAZOLE [Concomitant]
     Indication: PROPHYLAXIS
     Dosage: 20 MG, DAILY
  6. PRAVASTATIN [Concomitant]
     Indication: HYPERCHOLESTEROLAEMIA
     Dosage: 20 MG, DAILY
  7. METOPROLOL [Concomitant]
     Indication: HYPERTENSION
     Dosage: 47.5 MG, DAILY
  8. ACTRAPHANE [Concomitant]
     Indication: TYPE 2 DIABETES MELLITUS
     Dosage: 24 IU, DAILY
     Route: 058
  9. LITAREK [Concomitant]
     Indication: CHRONIC MYELOID LEUKAEMIA
     Dosage: 500 MG, DAILY
     Route: 048
     Dates: start: 201111, end: 201111
  10. AMLODIPIN [Concomitant]
     Indication: CARDIAC DISORDER
     Dosage: 5 MG, DAILY
  11. ALLOPURINOL [Concomitant]
     Indication: BLOOD URIC ACID INCREASED
     Dosage: 300 MG, DAILY
     Dates: start: 20120223
  12. FUROSEMIDE [Concomitant]
     Indication: DIURETIC THERAPY
     Dosage: 80 MG, DAILY
  13. LITALIR [Concomitant]
     Indication: CHRONIC MYELOID LEUKAEMIA
     Dosage: 500 MG, PER DAY
     Dates: start: 201111, end: 201111

REACTIONS (5)
  - Fall [Recovered/Resolved]
  - Subarachnoid haemorrhage [Recovered/Resolved]
  - Oedema [Recovered/Resolved]
  - Dyspnoea [Recovered/Resolved]
  - Pneumonia [Unknown]
